FAERS Safety Report 4935771-9 (Version None)
Quarter: 2006Q1

REPORT INFORMATION
  Report Type: 
  Country: None (occurrence: None)
  Receive Date: 20060307
  Receipt Date: 20051206
  Transmission Date: 20060701
  Serious: No
  Sender: FDA-Public Use
  Company Number: US-GLAXOSMITHKLINE-A0584850A

PATIENT
  Age: 65 Year
  Sex: Female

DRUGS (5)
  1. REQUIP [Suspect]
     Indication: MULTIPLE SCLEROSIS
     Dosage: .5MG PER DAY
     Route: 048
     Dates: start: 20051101
  2. BACLOFEN [Concomitant]
  3. INTERFERON [Concomitant]
  4. KLONOPIN [Concomitant]
  5. NEXIUM [Concomitant]

REACTIONS (1)
  - SOMNOLENCE [None]
